FAERS Safety Report 9580686 (Version 1)
Quarter: 2013Q3

REPORT INFORMATION
  Report Type: Spontaneous
  Country: US (occurrence: None)
  Receive Date: 20130930
  Receipt Date: 20130930
  Transmission Date: 20140515
  Serious: Yes (Other)
  Sender: FDA-Public Use
  Company Number: USA/USA/13-0034711

PATIENT
  Age: 14 Year
  Sex: Male
  Weight: 88.45 kg

DRUGS (1)
  1. ZENATANE (ISOTRETINOIN) [Suspect]
     Indication: ACNE
     Dosage: 40 MG, 2 IN 1 D, ORAL
     Route: 048
     Dates: start: 20130615, end: 20130715

REACTIONS (4)
  - Mood swings [None]
  - Back pain [None]
  - Arthralgia [None]
  - Chapped lips [None]
